FAERS Safety Report 12477244 (Version 3)
Quarter: 2016Q3

REPORT INFORMATION
  Report Type: Spontaneous
  Country: US (occurrence: US)
  Receive Date: 20160617
  Receipt Date: 20160707
  Transmission Date: 20161109
  Serious: Yes (Other)
  Sender: FDA-Public Use
  Company Number: US-TEVA-667700USA

PATIENT
  Age: 48 Year
  Sex: Female

DRUGS (2)
  1. ZECUITY [Suspect]
     Active Substance: SUMATRIPTAN SUCCINATE
     Route: 062
     Dates: start: 20160528
  2. ZECUITY [Suspect]
     Active Substance: SUMATRIPTAN SUCCINATE
     Indication: MIGRAINE
     Route: 062
     Dates: start: 20160626, end: 20160626

REACTIONS (8)
  - Drug administered at inappropriate site [Unknown]
  - Application site erythema [Unknown]
  - Application site dryness [Unknown]
  - Sunburn [Recovered/Resolved]
  - Application site discolouration [Unknown]
  - Application site pain [Unknown]
  - Application site exfoliation [Unknown]
  - Application site scab [Unknown]

NARRATIVE: CASE EVENT DATE: 20160528
